FAERS Safety Report 9153952 (Version 2)
Quarter: 2013Q4

REPORT INFORMATION
  Report Type: Spontaneous
  Country: FR (occurrence: FR)
  Receive Date: 20130311
  Receipt Date: 20131024
  Transmission Date: 20140711
  Serious: Yes (Hospitalization, Disabling)
  Sender: FDA-Public Use
  Company Number: FR-SANOFI-AVENTIS-2013SA023664

PATIENT
  Age: 62 Year
  Sex: Male
  Weight: 69 kg

DRUGS (15)
  1. KARDEGIC [Suspect]
     Indication: THROMBOSIS PROPHYLAXIS
     Dosage: FORM: POWDER
     Route: 048
     Dates: end: 20130204
  2. LOVENOX [Suspect]
     Indication: THROMBOSIS PROPHYLAXIS
     Route: 058
     Dates: end: 20130204
  3. EFFEXOR [Suspect]
     Indication: MAJOR DEPRESSION
     Route: 048
  4. EFFEXOR [Suspect]
     Indication: MAJOR DEPRESSION
     Route: 048
     Dates: end: 20130204
  5. CORTANCYL [Concomitant]
     Route: 048
  6. PROGRAF [Concomitant]
     Route: 048
  7. CELLCEPT [Concomitant]
     Route: 048
  8. EUPANTOL [Concomitant]
     Route: 048
  9. BACTRIM FORTE [Concomitant]
     Route: 048
  10. CALCIDOSE [Concomitant]
     Route: 048
  11. AZITHROMYCIN [Concomitant]
     Route: 048
  12. CRESTOR [Concomitant]
     Route: 048
  13. ROVALCYTE [Concomitant]
     Route: 048
  14. UVEDOSE [Concomitant]
     Route: 048
  15. FUNGIZONE [Concomitant]
     Route: 048

REACTIONS (2)
  - Hemiplegia [Recovered/Resolved with Sequelae]
  - Cerebral haematoma [Recovered/Resolved]
